FAERS Safety Report 24897315 (Version 1)
Quarter: 2025Q1

REPORT INFORMATION
  Report Type: Spontaneous
  Country: US (occurrence: US)
  Receive Date: 20250129
  Receipt Date: 20250129
  Transmission Date: 20250408
  Serious: Yes (Death, Hospitalization)
  Sender: NOVAST LABORATORIES LTD
  Company Number: US-NOVAST LABORATORIES INC.-2025NOV000170

PATIENT
  Age: 21 Year
  Sex: Female

DRUGS (4)
  1. METFORMIN [Suspect]
     Active Substance: METFORMIN HYDROCHLORIDE
     Indication: Product used for unknown indication
     Route: 048
  2. ACETAMINOPHEN\DEXTROMETHORPHAN [Suspect]
     Active Substance: ACETAMINOPHEN\DEXTROMETHORPHAN
     Indication: Product used for unknown indication
     Route: 048
  3. ACETAMINOPHEN\SALICYLIC ACID [Suspect]
     Active Substance: ACETAMINOPHEN\SALICYLIC ACID
     Indication: Product used for unknown indication
     Route: 048
  4. ANTIHISTAMINES NOS [Suspect]
     Active Substance: ANTIHISTAMINES NOS

REACTIONS (1)
  - Suspected suicide [Fatal]
